FAERS Safety Report 12030260 (Version 2)
Quarter: 2016Q1

REPORT INFORMATION
  Report Type: Spontaneous
  Country: JP (occurrence: JP)
  Receive Date: 20160207
  Receipt Date: 20160314
  Transmission Date: 20160526
  Serious: Yes (Other)
  Sender: FDA-Public Use
  Company Number: JP-TEVA-633215ISR

PATIENT
  Age: 63 Year
  Sex: Female

DRUGS (2)
  1. FLUOROURACIL. [Suspect]
     Active Substance: FLUOROURACIL
     Indication: EXTRAMAMMARY PAGET^S DISEASE
     Dosage: 600 MG/M2/BODY, 5 DAYS/WEEK, FOR 8-24H
     Route: 042
  2. CISPLATIN. [Suspect]
     Active Substance: CISPLATIN
     Indication: EXTRAMAMMARY PAGET^S DISEASE
     Dosage: 5-10 MG/ BODY, 5-7 DAYS/WEEK FOR 24 HOURS
     Route: 042

REACTIONS (1)
  - Pancytopenia [Unknown]
